FAERS Safety Report 4879827-8 (Version None)
Quarter: 2006Q1

REPORT INFORMATION
  Report Type: 
  Country: None (occurrence: None)
  Receive Date: 20060111
  Receipt Date: 20051228
  Transmission Date: 20060701
  Serious: Yes (Death)
  Sender: FDA-Public Use
  Company Number: FABR-11345

PATIENT
  Age: 51 Year
  Sex: Male
  Weight: 113.3993 kg

DRUGS (3)
  1. FABRAZYME [Suspect]
     Indication: FABRY'S DISEASE
     Dosage: 140 MG Q2WKS IV
     Route: 042
     Dates: start: 20030714
  2. CYCLOSPORINE [Concomitant]
  3. LASIX [Concomitant]

REACTIONS (1)
  - CARDIAC ARREST [None]
